FAERS Safety Report 12732060 (Version 1)
Quarter: 2016Q3

REPORT INFORMATION
  Report Type: Spontaneous
  Country: US (occurrence: US)
  Receive Date: 20160909
  Receipt Date: 20160909
  Transmission Date: 20161109
  Serious: Yes (Hospitalization)
  Sender: FDA-Public Use
  Company Number: None

PATIENT
  Age: 45 Year
  Sex: Male

DRUGS (1)
  1. PROAIR HFA [Suspect]
     Active Substance: ALBUTEROL SULFATE
     Indication: HEART TRANSPLANT
     Dosage: OTHER
     Route: 055
     Dates: start: 20150127

REACTIONS (1)
  - Chest pain [None]

NARRATIVE: CASE EVENT DATE: 20160908
